FAERS Safety Report 4373348-7 (Version None)
Quarter: 2004Q2

REPORT INFORMATION
  Report Type: 
  Country: None (occurrence: None)
  Receive Date: 20040603
  Receipt Date: 20040525
  Transmission Date: 20050107
  Serious: No
  Sender: FDA-Public Use
  Company Number: TAP2004Q00665

PATIENT
  Age: 76 Year
  Sex: Female
  Weight: 78.4723 kg

DRUGS (7)
  1. PREVPAC [Suspect]
     Indication: HELICOBACTER INFECTION
     Dates: start: 20040513, end: 20040517
  2. AVALIDE (KARVEA HCT) [Concomitant]
  3. AMITRIPTYLINE HCL [Concomitant]
  4. NEURONTIN [Concomitant]
  5. TOPROL-XL [Concomitant]
  6. SYNTHROID [Concomitant]
  7. PROTONIX [Concomitant]

REACTIONS (2)
  - ASTHENIA [None]
  - VISION BLURRED [None]
